FAERS Safety Report 22148791 (Version 1)
Quarter: 2023Q1

REPORT INFORMATION
  Report Type: Spontaneous
  Country: US (occurrence: US)
  Receive Date: 20230328
  Receipt Date: 20230328
  Transmission Date: 20230417
  Serious: No
  Sender: FDA-Public Use
  Company Number: US-CTI BIOPHARMA-2023US03357

PATIENT

DRUGS (1)
  1. VONJO [Suspect]
     Active Substance: PACRITINIB
     Indication: Product used for unknown indication

REACTIONS (4)
  - Constipation [Unknown]
  - Nausea [Recovering/Resolving]
  - Rectal haemorrhage [Unknown]
  - Diarrhoea [Unknown]
